FAERS Safety Report 12821640 (Version 1)
Quarter: 2016Q4

REPORT INFORMATION
  Report Type: Spontaneous
  Country: BR (occurrence: BR)
  Receive Date: 20161007
  Receipt Date: 20161007
  Transmission Date: 20170207
  Serious: Yes (Other)
  Sender: FDA-Public Use
  Company Number: BR-BAUSCH-BL-2016-021148

PATIENT
  Age: 62 Year
  Sex: Female

DRUGS (10)
  1. LORATADINE. [Suspect]
     Active Substance: LORATADINE
     Indication: DRUG HYPERSENSITIVITY
     Dosage: ONE TABLET DAILY IF NECESSARY
     Route: 048
     Dates: start: 2000
  2. ENALAPRIL MALEATE TABLET [Suspect]
     Active Substance: ENALAPRIL MALEATE
     Indication: BLOOD PRESSURE ABNORMAL
     Route: 048
     Dates: start: 1983
  3. CLONAZEPAM. [Suspect]
     Active Substance: CLONAZEPAM
     Indication: LABYRINTHITIS
  4. CLONAZEPAM. [Suspect]
     Active Substance: CLONAZEPAM
     Indication: DEPRESSION
     Dosage: HALF TABLET DAILY
     Route: 048
  5. LORATADINE. [Suspect]
     Active Substance: LORATADINE
     Indication: RHINITIS ALLERGIC
  6. TIMOPTOL-XE [Suspect]
     Active Substance: TIMOLOL
     Indication: INTRAOCULAR PRESSURE INCREASED
     Route: 047
     Dates: start: 201601, end: 20160926
  7. TIMOPTOL-XE [Suspect]
     Active Substance: TIMOLOL
     Indication: VISUAL IMPAIRMENT
     Route: 047
     Dates: start: 20160928, end: 20160928
  8. TIMOPTOL-XE [Suspect]
     Active Substance: TIMOLOL
     Indication: GLAUCOMA
     Route: 047
     Dates: start: 20160929
  9. VITAMINS [Concomitant]
     Active Substance: VITAMINS
     Indication: PRODUCT USED FOR UNKNOWN INDICATION
     Route: 065
  10. CALCIUM [Concomitant]
     Active Substance: CALCIUM
     Indication: PRODUCT USED FOR UNKNOWN INDICATION
     Route: 065

REACTIONS (10)
  - Visual acuity reduced [Not Recovered/Not Resolved]
  - Eye pruritus [Unknown]
  - Intraocular pressure fluctuation [Unknown]
  - Incorrect product storage [Unknown]
  - Expired product administered [Unknown]
  - Drug dependence [Not Recovered/Not Resolved]
  - Anxiety [Not Recovered/Not Resolved]
  - Abdominal pain [Unknown]
  - Drug dose omission [Unknown]
  - Overdose [Unknown]
